FAERS Safety Report 6520412-X (Version None)
Quarter: 2009Q4

REPORT INFORMATION
  Report Type: 
  Country: None (occurrence: None)
  Receive Date: 20091229
  Receipt Date: 20091214
  Transmission Date: 20100525
  Serious: Yes (Hospitalization)
  Sender: FDA-Public Use
  Company Number: HU-ROCHE-596419

PATIENT
  Sex: Male

DRUGS (5)
  1. BEVACIZUMAB [Suspect]
     Indication: NON-SMALL CELL LUNG CANCER
     Dosage: 1 UNK, Q3W
     Route: 042
     Dates: start: 20080722
  2. APO2L/TRAIL [Suspect]
     Indication: NON-SMALL CELL LUNG CANCER
     Dosage: 1 UNK, Q3W
     Route: 042
     Dates: start: 20080722
  3. EPOGEN [Concomitant]
     Indication: DRUG USE FOR UNKNOWN INDICATION
     Dosage: UNK
     Dates: start: 20080813, end: 20090105
  4. PACLITAXEL [Concomitant]
     Indication: DRUG USE FOR UNKNOWN INDICATION
     Dosage: UNK
     Route: 042
     Dates: start: 20080722, end: 20081111
  5. CARBOPLATIN [Concomitant]
     Indication: DRUG USE FOR UNKNOWN INDICATION
     Dosage: UNK
     Route: 042
     Dates: start: 20080722, end: 20081111

REACTIONS (2)
  - ANAEMIA [None]
  - EPISTAXIS [None]
